FAERS Safety Report 20395813 (Version 1)
Quarter: 2022Q1

REPORT INFORMATION
  Report Type: Spontaneous
  Country: US (occurrence: US)
  Receive Date: 20220130
  Receipt Date: 20220130
  Transmission Date: 20220423
  Serious: Yes (Other)
  Sender: FDA-Public Use
  Company Number: US-PURDUE PHARMA-USA-2021-0272762

PATIENT
  Age: 28 Year
  Sex: Female

DRUGS (5)
  1. OXYCONTIN [Suspect]
     Active Substance: OXYCODONE HYDROCHLORIDE
     Indication: Product used for unknown indication
     Route: 048
  2. FENTANYL [Suspect]
     Active Substance: FENTANYL
     Indication: Product used for unknown indication
     Route: 065
  3. AMPHETAMINE [Suspect]
     Active Substance: AMPHETAMINE
     Indication: Product used for unknown indication
     Route: 065
  4. METHAMPHETAMINE [Suspect]
     Active Substance: METHAMPHETAMINE
     Indication: Product used for unknown indication
     Route: 065
  5. DRONABINOL [Suspect]
     Active Substance: DRONABINOL
     Indication: Product used for unknown indication
     Route: 065

REACTIONS (10)
  - Substance abuse [Unknown]
  - Impaired driving ability [Unknown]
  - Product counterfeit [Unknown]
  - Glassy eyes [Unknown]
  - Balance disorder [Unknown]
  - Nystagmus [Unknown]
  - Abnormal behaviour [Unknown]
  - Ocular hyperaemia [Unknown]
  - Miosis [Unknown]
  - Tremor [Unknown]

NARRATIVE: CASE EVENT DATE: 20210205
